FAERS Safety Report 18753536 (Version 1)
Quarter: 2021Q1

REPORT INFORMATION
  Report Type: Spontaneous
  Country: US (occurrence: US)
  Receive Date: 20210118
  Receipt Date: 20210118
  Transmission Date: 20210419
  Serious: No
  Sender: FDA-Public Use
  Company Number: US-AMGEN INC.-USASP2021006867

PATIENT
  Age: 65 Year
  Sex: Female

DRUGS (3)
  1. TRIPTAN [OXITRIPTAN] [Concomitant]
     Active Substance: OXITRIPTAN
     Dosage: UNK
     Route: 045
  2. HYDROCODONE [Concomitant]
     Active Substance: HYDROCODONE
     Dosage: UNK
  3. AIMOVIG [Suspect]
     Active Substance: ERENUMAB-AOOE
     Indication: MIGRAINE
     Dosage: 140 MILLIGRAM, QMO
     Route: 058
     Dates: start: 2018

REACTIONS (1)
  - Electrocardiogram T wave peaked [Unknown]
